FAERS Safety Report 5264472-5 (Version None)
Quarter: 2007Q1

REPORT INFORMATION
  Report Type: 
  Country: None (occurrence: None)
  Receive Date: 20070313
  Receipt Date: 20070307
  Transmission Date: 20070707
  Serious: Yes (Death)
  Sender: FDA-Public Use
  Company Number: GR-SHR-GR-2007-008106

PATIENT
  Age: 49 Year
  Sex: Male

DRUGS (1)
  1. MAGNEVIST [Suspect]
     Indication: NUCLEAR MAGNETIC RESONANCE IMAGING
     Dosage: 20 ML, 1 DOSE
     Route: 042
     Dates: start: 20070306, end: 20070306

REACTIONS (5)
  - BURNING SENSATION [None]
  - DISCOMFORT [None]
  - DYSPNOEA [None]
  - PULSE ABSENT [None]
  - TACHYCARDIA [None]
